FAERS Safety Report 9495642 (Version 2)
Quarter: 2018Q2

REPORT INFORMATION
  Report Type: Spontaneous
  Country: GB (occurrence: GB)
  Receive Date: 20130903
  Receipt Date: 20180503
  Transmission Date: 20180711
  Serious: Yes (Hospitalization, Other)
  Sender: FDA-Public Use
  Company Number: GB-TEVA-429161ISR

PATIENT
  Age: 86 Year
  Sex: Female

DRUGS (5)
  1. ATENOLOL. [Concomitant]
     Active Substance: ATENOLOL
     Dosage: 50 MILLIGRAM DAILY;
  2. LANSOPRAZOLE. [Suspect]
     Active Substance: LANSOPRAZOLE
     Dosage: 15 MILLIGRAM DAILY;
     Route: 048
  3. QUETIAPINE. [Suspect]
     Active Substance: QUETIAPINE
     Indication: CONFUSIONAL STATE
     Route: 048
  4. NITROFURANTOIN. [Concomitant]
     Active Substance: NITROFURANTOIN
  5. WARFARIN [Concomitant]
     Active Substance: WARFARIN

REACTIONS (3)
  - Hyponatraemia [Unknown]
  - Inappropriate antidiuretic hormone secretion [Recovered/Resolved]
  - Confusional state [Recovering/Resolving]

NARRATIVE: CASE EVENT DATE: 20130424
